FAERS Safety Report 26004085 (Version 2)
Quarter: 2025Q4

REPORT INFORMATION
  Report Type: Spontaneous
  Country: US (occurrence: US)
  Receive Date: 20251106
  Receipt Date: 20251128
  Transmission Date: 20260119
  Serious: Yes (Hospitalization)
  Sender: SANOFI AVENTIS
  Company Number: US-SA-2025SA323055

PATIENT
  Age: 42 Year
  Sex: Female

DRUGS (2)
  1. DUPIXENT [Suspect]
     Active Substance: DUPILUMAB
     Indication: Asthma
     Dosage: 600 MG, 1X
     Route: 058
  2. DUPIXENT [Suspect]
     Active Substance: DUPILUMAB
     Dosage: 300 MG, QOW
     Route: 058

REACTIONS (6)
  - Asthma [Unknown]
  - Dyspnoea [Unknown]
  - Swelling face [Not Recovered/Not Resolved]
  - Conjunctivitis [Unknown]
  - Eye pruritus [Unknown]
  - Eye discharge [Unknown]

NARRATIVE: CASE EVENT DATE: 20251101
